FAERS Safety Report 17774655 (Version 1)
Quarter: 2020Q2

REPORT INFORMATION
  Report Type: Spontaneous
  Country: US (occurrence: US)
  Receive Date: 20200513
  Receipt Date: 20200513
  Transmission Date: 20200714
  Serious: Yes (Other)
  Sender: FDA-Public Use
  Company Number: US-AMGEN-USASP2020074392

PATIENT
  Age: 73 Year
  Sex: Male

DRUGS (29)
  1. HEPARIN [Concomitant]
     Active Substance: HEPARIN SODIUM
     Dosage: 2000 UNIT, 3 TIMES/WK, ON DIALYSIS DAYS THRU THE CATH SITE
  2. COZAAR [Concomitant]
     Active Substance: LOSARTAN POTASSIUM
     Dosage: 50 MILLIGRAM, ONE TAB  BID
  3. DEMADEX [Concomitant]
     Active Substance: TORSEMIDE
     Dosage: 20 MILLIGRAM, BID
  4. CATAPRES [Concomitant]
     Active Substance: CLONIDINE HYDROCHLORIDE
     Dosage: 0.1 MILLIGRAM, 3 TIMES/WK, TWO TABS ON DIALYSIS DAYS PRN
  5. MIRCERA [Concomitant]
     Active Substance: METHOXY POLYETHYLENE GLYCOL-EPOETIN BETA
     Dosage: 150 MICROGRAM, Q 0 WEEK 3;
  6. ALDACTAZIDE [Concomitant]
     Active Substance: HYDROCHLOROTHIAZIDE\SPIRONOLACTONE
     Dosage: 25 MILLIGRAM, HALF A TAB QD
  7. AMLODIPINE [Concomitant]
     Active Substance: AMLODIPINE BESYLATE
     Dosage: 10 MILLIGRAM, QD
  8. METOPROLOL SUCCINATE. [Concomitant]
     Active Substance: METOPROLOL SUCCINATE
     Dosage: 25 MILLIGRAM, QD
  9. VITAMINE D [Concomitant]
     Active Substance: CHOLECALCIFEROL
     Dosage: 400 UNIT, UNITS ONE TAB OD
  10. ALLOPURINOL. [Concomitant]
     Active Substance: ALLOPURINOL
     Dosage: 100 MILLIGRAM, TID
  11. PARSABIV [Suspect]
     Active Substance: ETELCALCETIDE HYDROCHLORIDE
     Indication: HYPERPARATHYROIDISM SECONDARY
     Dosage: 5 MILLIGRAM, 3 TIMES/WK (TTS)
     Route: 065
     Dates: start: 201901
  12. PARSABIV [Suspect]
     Active Substance: ETELCALCETIDE HYDROCHLORIDE
     Dosage: UNK
     Route: 065
     Dates: start: 201907, end: 201912
  13. ASPIRIN 81 [Concomitant]
     Active Substance: ASPIRIN
     Dosage: 81 MILLIGRAM, QD
  14. B COMPLEX WITH FOLIC ACID [Concomitant]
     Dosage: UNK UNK, QD
  15. PLAVIX [Concomitant]
     Active Substance: CLOPIDOGREL BISULFATE
     Dosage: 75 MILLIGRAM
  16. PARSABIV [Suspect]
     Active Substance: ETELCALCETIDE HYDROCHLORIDE
     Dosage: 10 MILLIGRAM, 3 TIMES/WK
     Route: 065
     Dates: start: 201905, end: 201906
  17. PARSABIV [Suspect]
     Active Substance: ETELCALCETIDE HYDROCHLORIDE
     Dosage: UNK
     Route: 065
     Dates: start: 202002
  18. VENOFER [Concomitant]
     Active Substance: IRON SUCROSE
     Dosage: 50 MILLIGRAM, QWK
  19. GEMFIBROZIL. [Concomitant]
     Active Substance: GEMFIBROZIL
     Dosage: 600 MILLIGRAM, TABS 0.5 TABS OD
  20. GLUCOPHAGE [METFORMIN] [Concomitant]
     Dosage: 500 MILLIGRAM, QD
  21. LIPITOR [ATORVASTATIN] [Concomitant]
     Dosage: 10 MILLIGRAM, QD
  22. VITAMIN D3 [Concomitant]
     Active Substance: CHOLECALCIFEROL
     Dosage: 1000 MILLILITER,TWO DROPS,  QD
  23. PARSABIV [Suspect]
     Active Substance: ETELCALCETIDE HYDROCHLORIDE
     Dosage: 7.5 MILLIGRAM, 3 TIMES/WK
     Route: 065
     Dates: start: 201903
  24. ATORVASTATIN CALCIUM. [Concomitant]
     Active Substance: ATORVASTATIN CALCIUM
     Dosage: 20 MILLIGRAM, HALF A TAB, QD
  25. CALCIUM ACETATE. [Concomitant]
     Active Substance: CALCIUM ACETATE
     Dosage: 667 MILLIGRAM, TID WITH MEALS
  26. DEMADEX [Concomitant]
     Active Substance: TORSEMIDE
     Dosage: 20 MILLIGRAM, QOD
  27. IRON PLUS [ASCORBIC ACID;FERROUS FUMARATE] [Concomitant]
     Dosage: 500.4 MILLIGRAM, QD
  28. RENAPLEX [Concomitant]
     Dosage: UNK UNK, QD
  29. TUMS [Concomitant]
     Active Substance: CALCIUM CARBONATE
     Dosage: TWO TABS NOCTURNAL

REACTIONS (3)
  - Blood calcium decreased [Unknown]
  - Myocardial infarction [Unknown]
  - Facial paralysis [Unknown]

NARRATIVE: CASE EVENT DATE: 202002
